FAERS Safety Report 13403621 (Version 5)
Quarter: 2017Q2

REPORT INFORMATION
  Report Type: Spontaneous
  Country: KW (occurrence: KW)
  Receive Date: 20170405
  Receipt Date: 20170605
  Transmission Date: 20170830
  Serious: Yes (Hospitalization)
  Sender: FDA-Public Use
  Company Number: PHHY2017KW048020

PATIENT
  Sex: Female

DRUGS (1)
  1. COSENTYX [Suspect]
     Active Substance: SECUKINUMAB
     Indication: PSORIATIC ARTHROPATHY
     Dosage: 150 MG, QW
     Route: 030
     Dates: end: 20170405

REACTIONS (4)
  - Subcutaneous abscess [Recovering/Resolving]
  - Psoriatic arthropathy [Unknown]
  - Staphylococcal sepsis [Recovering/Resolving]
  - Incorrect route of drug administration [Unknown]

NARRATIVE: CASE EVENT DATE: 20170326
